FAERS Safety Report 4284992-X (Version None)
Quarter: 2004Q1

REPORT INFORMATION
  Report Type: 
  Country: None (occurrence: None)
  Receive Date: 20040203
  Receipt Date: 20040203
  Transmission Date: 20041129
  Serious: No
  Sender: FDA-Public Use
  Company Number: None

PATIENT
  Sex: Female
  Weight: 79.3795 kg

DRUGS (2)
  1. PAXIL CR [Suspect]
     Indication: ANXIETY
     Dosage: 25 MG DAILY ORAL
     Route: 048
     Dates: start: 20020615, end: 20040202
  2. PAXIL CR [Suspect]
     Indication: DEPRESSION
     Dosage: 25 MG DAILY ORAL
     Route: 048
     Dates: start: 20020615, end: 20040202

REACTIONS (7)
  - BEDRIDDEN [None]
  - DRUG WITHDRAWAL SYNDROME [None]
  - DYSSTASIA [None]
  - FLUID INTAKE REDUCED [None]
  - HYPERSOMNIA [None]
  - IRRITABILITY [None]
  - MARKEDLY REDUCED DIETARY INTAKE [None]
